FAERS Safety Report 7414276 (Version 2)
Quarter: 2013Q1

REPORT INFORMATION
  Report Type: Spontaneous
  Country: GB (occurrence: None)
  Receive Date: 20100602
  Receipt Date: 20130219
  Transmission Date: 20140127
  Serious: Yes (Hospitalization, Other)
  Sender: FDA-Public Use
  Company Number: 475042

PATIENT
  Age: 66 Year
  Sex: Female

DRUGS (6)
  1. (METHOTREXATE) [Suspect]
     Indication: METASTASES TO MENINGES
     Dosage: 12.5 MG MILLIGRAM(S),2 WEEK, INTRATHECAL
     Route: 037
     Dates: start: 20091216, end: 20091218
  2. LEUCOVORIN CALCIUM [Concomitant]
  3. IBANDRONIC ACID [Concomitant]
  4. CO-CODAMOL [Concomitant]
  5. (QUININE) [Concomitant]
  6. (TINZAPARIN) [Concomitant]

REACTIONS (6)
  - Mucosal inflammation [None]
  - Eczema asteatotic [None]
  - Dehydration [None]
  - Clostridium difficile colitis [None]
  - Pancytopenia [None]
  - Rash [None]
